FAERS Safety Report 15327667 (Version 1)
Quarter: 2018Q3

REPORT INFORMATION
  Report Type: Spontaneous
  Country: FR (occurrence: FR)
  Receive Date: 20180828
  Receipt Date: 20180828
  Transmission Date: 20181010
  Serious: Yes (Hospitalization)
  Sender: FDA-Public Use
  Company Number: FR-PFIZER INC-2018341370

PATIENT
  Age: 42 Year
  Sex: Male
  Weight: 59 kg

DRUGS (2)
  1. ALPRAZOLAM. [Suspect]
     Active Substance: ALPRAZOLAM
     Dosage: UNK (4 BLISTERS OF 0.5 MG / TABLET)
     Route: 048
     Dates: start: 20180630, end: 20180630
  2. QUETIAPINE. [Suspect]
     Active Substance: QUETIAPINE
     Dosage: 9000 MG, UNK
     Route: 048
     Dates: start: 20180630, end: 20180630

REACTIONS (6)
  - Hypotension [Recovered/Resolved]
  - Bundle branch block right [Recovered/Resolved]
  - Altered state of consciousness [Recovered/Resolved]
  - Intentional product use issue [Unknown]
  - Suicide attempt [Unknown]
  - Tachycardia [Recovered/Resolved]

NARRATIVE: CASE EVENT DATE: 20180630
